FAERS Safety Report 22365946 (Version 2)
Quarter: 2023Q2

REPORT INFORMATION
  Report Type: Spontaneous
  Country: US (occurrence: US)
  Receive Date: 20230525
  Receipt Date: 20230609
  Transmission Date: 20230722
  Serious: No
  Sender: FDA-Public Use
  Company Number: US-SUNOVION-2023SUN000673AA

PATIENT
  Sex: Female

DRUGS (1)
  1. KYNMOBI [Suspect]
     Active Substance: APOMORPHINE HYDROCHLORIDE
     Indication: Parkinson^s disease
     Dosage: UNK
     Route: 060

REACTIONS (3)
  - Tooth discolouration [Recovered/Resolved]
  - Tongue discolouration [Recovered/Resolved]
  - Discomfort [Unknown]
